FAERS Safety Report 8867942 (Version 1)
Quarter: 2012Q4

REPORT INFORMATION
  Report Type: 
  Country: US (occurrence: US)
  Receive Date: 20121025
  Receipt Date: 20121025
  Transmission Date: 20130627
  Serious: No
  Sender: FDA-Public Use
  Company Number: US-AMGEN-USASP2012018885

PATIENT
  Age: 15 Year
  Sex: Male

DRUGS (2)
  1. ENBREL [Suspect]
     Indication: RHEUMATOID ARTHRITIS
     Dosage: 50 mg, qwk
     Dates: end: 201203
  2. ENBREL [Suspect]
     Indication: PSORIASIS
     Dates: end: 201203

REACTIONS (1)
  - Psoriasis [Not Recovered/Not Resolved]
